FAERS Safety Report 4735116-3 (Version None)
Quarter: 2005Q3

REPORT INFORMATION
  Report Type: 
  Country: None (occurrence: None)
  Receive Date: 20050804
  Receipt Date: 20050720
  Transmission Date: 20060218
  Serious: Yes (Other)
  Sender: FDA-Public Use
  Company Number: USA0507103332

PATIENT
  Age: 3 Year
  Sex: Female
  Weight: 11 kg

DRUGS (2)
  1. HUMATROPE [Suspect]
     Indication: GROWTH HORMONE DEFICIENCY
     Dosage: 0.6 MG/1 DAY
     Dates: start: 20050708
  2. PULMICORT [Concomitant]

REACTIONS (5)
  - BREATH SOUNDS ABNORMAL [None]
  - COUGH [None]
  - DYSPNOEA [None]
  - GRUNTING [None]
  - PHARMACEUTICAL PRODUCT COMPLAINT [None]
